FAERS Safety Report 7340038-8 (Version None)
Quarter: 2011Q1

REPORT INFORMATION
  Report Type: 
  Country: None (occurrence: None)
  Receive Date: 20110309
  Receipt Date: 20110223
  Transmission Date: 20110831
  Serious: Yes (Other)
  Sender: FDA-Public Use
  Company Number: JP-RANBAXY-2011RR-42743

PATIENT
  Age: 84 Year
  Sex: Female

DRUGS (8)
  1. THYMOL [Concomitant]
     Indication: PRODUCT USED FOR UNKNOWN INDICATION
     Route: 065
  2. NIFEDIPINE [Concomitant]
     Indication: PRODUCT USED FOR UNKNOWN INDICATION
     Route: 065
  3. CALCIUM L-ASPARTATE [Concomitant]
     Indication: PRODUCT USED FOR UNKNOWN INDICATION
     Route: 065
  4. FENOFIBRATE [Suspect]
     Indication: HYPERTRIGLYCERIDAEMIA
     Dosage: 67 MG, UNK
     Route: 048
     Dates: start: 20110205, end: 20110215
  5. DIASTASE NATURAL AGENTS COMBINED DRUG [Concomitant]
     Indication: PRODUCT USED FOR UNKNOWN INDICATION
     Route: 065
  6. SODIUM AZULENE SULFONATE L-GLUTAMINE [Concomitant]
     Indication: PRODUCT USED FOR UNKNOWN INDICATION
     Route: 065
  7. KETOPROFEN [Concomitant]
     Indication: PRODUCT USED FOR UNKNOWN INDICATION
     Route: 065
  8. MAGNESIUM OXIDE [Concomitant]
     Indication: PRODUCT USED FOR UNKNOWN INDICATION
     Route: 065

REACTIONS (3)
  - ANGINA PECTORIS [None]
  - SWOLLEN TONGUE [None]
  - PRURITUS [None]
